FAERS Safety Report 20632611 (Version 2)
Quarter: 2022Q3

REPORT INFORMATION
  Report Type: Spontaneous
  Country: KR (occurrence: KR)
  Receive Date: 20220324
  Receipt Date: 20220929
  Transmission Date: 20221027
  Serious: Yes (Other)
  Sender: FDA-Public Use
  Company Number: KR-009507513-2203KOR007232

PATIENT
  Age: 29 Year
  Sex: Female
  Weight: 51.8 kg

DRUGS (14)
  1. PREVYMIS [Suspect]
     Active Substance: LETERMOVIR
     Indication: Antiviral prophylaxis
     Dosage: ONCE DAILY, STRENGTH: 480 MG
     Route: 048
     Dates: start: 20201117, end: 20201119
  2. K CAB [Concomitant]
     Indication: Gastritis prophylaxis
     Dosage: 50 MILLIGRAM, QD
     Route: 048
     Dates: start: 20201103, end: 20201117
  3. K CAB [Concomitant]
     Indication: Gastrooesophageal reflux prophylaxis
  4. URSODIOL [Concomitant]
     Active Substance: URSODIOL
     Indication: Prophylaxis
     Dosage: 100 MILLIGRAM, TID
     Route: 048
     Dates: start: 20201103
  5. ETHINYL ESTRADIOL\GESTODENE [Concomitant]
     Active Substance: ETHINYL ESTRADIOL\GESTODENE
     Indication: Vaginal haemorrhage
     Dosage: 1 TABLET, QD
     Route: 048
     Dates: start: 20201121, end: 20201203
  6. SPORANOX [Concomitant]
     Active Substance: ITRACONAZOLE
     Indication: Bronchopulmonary aspergillosis
     Dosage: 400 MILLIGRAM, QD
     Route: 048
     Dates: start: 20201126, end: 20201203
  7. PROGRAF [Concomitant]
     Active Substance: TACROLIMUS
     Indication: Prophylaxis against graft versus host disease
     Dosage: 1.3 MILLIGRAM, QD
     Route: 042
     Dates: start: 20201121, end: 20201126
  8. TACROBELL [TACROLIMUS] [Concomitant]
     Indication: Prophylaxis against graft versus host disease
     Dosage: 2 MILLIGRAM, QD
     Route: 048
     Dates: start: 20201126, end: 20201126
  9. TACROBELL [TACROLIMUS] [Concomitant]
     Dosage: 4 MILLIGRAM, QD
     Route: 048
     Dates: start: 20201127
  10. LENOGRASTIM [Concomitant]
     Active Substance: LENOGRASTIM
     Indication: Febrile neutropenia
     Dosage: 300 MICROGRAM, QD
     Route: 058
     Dates: start: 20201120, end: 20201128
  11. VACRAX [ACICLOVIR] [Concomitant]
     Indication: Prophylaxis
     Dosage: 200 MILLIGRAM, BID
     Route: 048
     Dates: start: 20201203
  12. NEXIUM [Concomitant]
     Active Substance: ESOMEPRAZOLE MAGNESIUM
     Indication: Abdominal pain upper
     Dosage: 40 MILLIGRAM, QD
     Route: 042
     Dates: start: 20201118, end: 20201127
  13. SULFAMETHOXAZOLE\TRIMETHOPRIM [Concomitant]
     Active Substance: SULFAMETHOXAZOLE\TRIMETHOPRIM
     Indication: Infection prophylaxis
     Dosage: 1 DOSAGE FORM, QD
     Dates: start: 20201125, end: 20201203
  14. TACROBELL SR [Concomitant]
     Indication: Prophylaxis against graft versus host disease
     Dosage: 4 MILLIGRAM, QD
     Route: 048
     Dates: start: 20201127

REACTIONS (3)
  - Cytomegalovirus gastroenteritis [Unknown]
  - Cytomegalovirus colitis [Unknown]
  - Drug ineffective [Unknown]

NARRATIVE: CASE EVENT DATE: 20201210
